FAERS Safety Report 8142472-5 (Version None)
Quarter: 2012Q1

REPORT INFORMATION
  Report Type: 
  Country: None (occurrence: None)
  Receive Date: 20120216
  Receipt Date: 20120208
  Transmission Date: 20120608
  Serious: Yes (Hospitalization)
  Sender: FDA-Public Use
  Company Number: SE-JNJFOC-20120203859

PATIENT
  Sex: Female

DRUGS (13)
  1. TENORMIN [Concomitant]
     Route: 065
  2. NITROLINGUAL [Concomitant]
     Route: 065
  3. FOLIC ACID [Concomitant]
     Route: 065
  4. COZAAR [Concomitant]
     Route: 065
  5. LASIX [Concomitant]
     Route: 065
  6. LAKTULOS [Concomitant]
     Route: 065
  7. HALDOL [Suspect]
     Route: 048
     Dates: start: 20111110
  8. CITALOPRAM HYDROBROMIDE [Concomitant]
     Route: 065
  9. IMDUR [Concomitant]
     Route: 065
  10. HALDOL [Suspect]
     Indication: PRODUCT USED FOR UNKNOWN INDICATION
     Route: 048
  11. ARICEPT [Concomitant]
     Route: 065
  12. ACETAMINOPHEN [Concomitant]
     Route: 065
  13. CLOPIDOGREL [Concomitant]
     Route: 065

REACTIONS (5)
  - HYPERSOMNIA [None]
  - FATIGUE [None]
  - FALL [None]
  - URINARY TRACT INFECTION [None]
  - GENERAL PHYSICAL HEALTH DETERIORATION [None]
